FAERS Safety Report 19729482 (Version 5)
Quarter: 2021Q4

REPORT INFORMATION
  Report Type: Spontaneous
  Country: US (occurrence: None)
  Receive Date: 20210820
  Receipt Date: 20211123
  Transmission Date: 20220303
  Serious: Yes (Hospitalization, Other)
  Sender: FDA-Public Use
  Company Number: US-FRESENIUS KABI-FK202108761

PATIENT
  Age: 76 Year
  Sex: Male
  Weight: 89 kg

DRUGS (38)
  1. FLUDARABINE [Suspect]
     Active Substance: FLUDARABINE PHOSPHATE
     Indication: Diffuse large B-cell lymphoma
     Dosage: FLUDARABINE INJECTION ?65 MG X ONCE, ONCE
     Route: 042
     Dates: start: 20210714, end: 20210714
  2. FLUDARABINE [Suspect]
     Active Substance: FLUDARABINE PHOSPHATE
     Dosage: 65 MG X ONCE, ONCE
     Route: 042
     Dates: start: 20210715, end: 20210715
  3. FLUDARABINE [Suspect]
     Active Substance: FLUDARABINE PHOSPHATE
     Dosage: 65 MG X ONCE, ONCE
     Route: 042
     Dates: start: 20210716, end: 20210716
  4. CYCLOPHOSPHAMIDE [Suspect]
     Active Substance: CYCLOPHOSPHAMIDE
     Indication: Diffuse large B-cell lymphoma
     Dosage: CYCLOPHOSPHAMIDE INJECTION ?650 MG X ONCE, ONCE
     Route: 042
     Dates: start: 20210714, end: 20210714
  5. CYCLOPHOSPHAMIDE [Suspect]
     Active Substance: CYCLOPHOSPHAMIDE
     Dosage: 650 MG X ONCE, ONCE
     Route: 042
     Dates: start: 20210715, end: 20210715
  6. CYCLOPHOSPHAMIDE [Suspect]
     Active Substance: CYCLOPHOSPHAMIDE
     Dosage: 650 MG X ONCE, ONCE
     Route: 042
     Dates: start: 20210716, end: 20210716
  7. ALBUTEROL [Concomitant]
     Active Substance: ALBUTEROL
     Indication: Chronic obstructive pulmonary disease
     Dosage: ALBUTEROL 90 MCG/INH?UNKNOWN-ONGOING
  8. ACETAMINOPHEN [Concomitant]
     Active Substance: ACETAMINOPHEN
     Indication: Premedication
     Route: 048
     Dates: start: 20210719, end: 20210719
  9. ACYCLOVIR [Concomitant]
     Active Substance: ACYCLOVIR
     Indication: Prophylaxis
     Dosage: 400 MG X 2 X 1 DAYS?ONGOING
     Route: 048
     Dates: start: 20210602
  10. MAGNESIUM HYDROXIDE/MAGNESIUM ALUMINUM SILICATE/ALUMINIUM HYDROXIDE GE [Concomitant]
     Indication: Prophylaxis
     Dosage: ALUMINUM-MAGNESIUM HYDROXIDE/SIMETHICONE
     Route: 048
     Dates: start: 20210717, end: 20210717
  11. SULFAMETHOXAZOLE\TRIMETHOPRIM [Concomitant]
     Active Substance: SULFAMETHOXAZOLE\TRIMETHOPRIM
     Indication: Prophylaxis
     Dosage: BACTRIM 400 MG-80 MG ?ONGOING
     Route: 048
     Dates: start: 20210602
  12. DOCUSATE SODIUM [Concomitant]
     Active Substance: DOCUSATE SODIUM
     Indication: Constipation
     Dosage: ONGOING
     Route: 048
     Dates: start: 20200819
  13. DIPHENHYDRAMINE [Concomitant]
     Active Substance: DIPHENHYDRAMINE
     Indication: Premedication
     Route: 042
     Dates: start: 20210719, end: 20210719
  14. FUROSEMIDE [Concomitant]
     Active Substance: FUROSEMIDE
     Indication: Hypertension
     Route: 042
     Dates: start: 20210716, end: 20210716
  15. FUROSEMIDE [Concomitant]
     Active Substance: FUROSEMIDE
     Indication: Prophylaxis
  16. LIDOCAINE [Concomitant]
     Active Substance: LIDOCAINE
     Indication: Central venous catheterisation
     Route: 042
     Dates: start: 20210708, end: 20210708
  17. MAGNESIUM CITRATE [Concomitant]
     Active Substance: MAGNESIUM CITRATE
     Indication: Constipation
     Route: 048
     Dates: start: 20210717, end: 20210717
  18. ONDANSETRON [Concomitant]
     Active Substance: ONDANSETRON
     Indication: Chemotherapy
     Route: 042
     Dates: start: 20210717, end: 20210718
  19. ONDANSETRON [Concomitant]
     Active Substance: ONDANSETRON
     Indication: Supportive care
     Dosage: ONGOING
     Route: 048
     Dates: start: 20210724
  20. ONDANSETRON [Concomitant]
     Active Substance: ONDANSETRON
     Indication: Adverse event
  21. PALONOSETRON [Concomitant]
     Active Substance: PALONOSETRON
     Indication: Chemotherapy
     Route: 042
     Dates: start: 20210714, end: 20210714
  22. PALONOSETRON [Concomitant]
     Active Substance: PALONOSETRON
     Indication: Supportive care
  23. POLYETHYLENE GLYCOLS [Concomitant]
     Active Substance: POLYETHYLENE GLYCOLS
     Indication: Laxative supportive care
     Dosage: ONGOING
     Route: 048
     Dates: start: 20200820
  24. SENNOSIDES A AND B [Concomitant]
     Active Substance: SENNOSIDES A AND B
     Indication: Laxative supportive care
     Dosage: ONGOING
     Route: 048
     Dates: start: 20200720
  25. APREPITANT [Concomitant]
     Active Substance: APREPITANT
     Indication: Nausea
     Route: 065
  26. APREPITANT [Concomitant]
     Active Substance: APREPITANT
     Indication: Prophylaxis
  27. FAMOTIDINE [Concomitant]
     Active Substance: FAMOTIDINE
     Indication: Nausea
     Route: 065
  28. PANTOPRAZOLE [Concomitant]
     Active Substance: PANTOPRAZOLE
     Indication: Nausea
     Route: 065
  29. ACETYLSALICYLIC ACID [Concomitant]
     Indication: Acute coronary syndrome
     Route: 065
  30. EPINEPHRINE [Concomitant]
     Active Substance: EPINEPHRINE
     Indication: Acute coronary syndrome
     Route: 065
  31. MORPHINE SULFATE [Concomitant]
     Active Substance: MORPHINE SULFATE
     Indication: Acute coronary syndrome
     Route: 065
  32. SODIUM CHLORIDE [Concomitant]
     Active Substance: SODIUM CHLORIDE
     Indication: Acute coronary syndrome
     Route: 065
  33. ALLOPURINOL [Concomitant]
     Active Substance: ALLOPURINOL
     Indication: Prophylaxis
     Route: 048
     Dates: start: 20210721, end: 20210726
  34. DILTIAZEM HYDROCHLORIDE [Concomitant]
     Active Substance: DILTIAZEM HYDROCHLORIDE
     Indication: Prophylaxis
     Dosage: 1 IN 1 DAYS
     Route: 048
     Dates: start: 20210726, end: 20210804
  35. DILTIAZEM [Concomitant]
     Active Substance: DILTIAZEM
     Indication: Hypertension
     Dosage: 2 X 1 DAYS
     Route: 048
     Dates: start: 20210721, end: 20210726
  36. CHOLECALCIFEROL [Concomitant]
     Active Substance: CHOLECALCIFEROL
     Indication: Supplementation therapy
     Dosage: VITAMIN D3 1000 INTL UNITS?1 X 1 DAYS?ONGOING
     Route: 048
     Dates: start: 20210727
  37. ISOSORBIDE MONONITRATE [Concomitant]
     Active Substance: ISOSORBIDE MONONITRATE
     Indication: Hypertension
     Route: 048
     Dates: start: 20210721, end: 20210721
  38. RAMELTEON [Concomitant]
     Active Substance: RAMELTEON
     Indication: Insomnia
     Dosage: 1 X 1 DAYS
     Route: 048
     Dates: start: 20210723, end: 20210724

REACTIONS (4)
  - Bacteraemia [Recovered/Resolved]
  - Device related bacteraemia [Unknown]
  - Leukopenia [Unknown]
  - Neutropenia [Unknown]

NARRATIVE: CASE EVENT DATE: 20210731
